FAERS Safety Report 4329062-7 (Version None)
Quarter: 2004Q2

REPORT INFORMATION
  Report Type: 
  Country: None (occurrence: None)
  Receive Date: 20040401
  Receipt Date: 20040326
  Transmission Date: 20050107
  Serious: Yes (Other)
  Sender: FDA-Public Use
  Company Number: FR-BRISTOL-MYERS SQUIBB COMPANY-12544227

PATIENT
  Age: 60 Year
  Sex: Male

DRUGS (3)
  1. REYATAZ [Suspect]
     Indication: HIV INFECTION
     Route: 048
     Dates: start: 20040201, end: 20040329
  2. SUSTIVA [Suspect]
     Indication: HIV INFECTION
     Dates: start: 20040201, end: 20040329
  3. VIDEX [Suspect]
     Indication: HIV INFECTION
     Dates: start: 20040201, end: 20040329

REACTIONS (2)
  - HYPERBILIRUBINAEMIA [None]
  - OCULAR ICTERUS [None]
